FAERS Safety Report 16704260 (Version 2)
Quarter: 2019Q3

REPORT INFORMATION
  Report Type: Spontaneous
  Country: US (occurrence: US)
  Receive Date: 20190814
  Receipt Date: 20190918
  Transmission Date: 20191004
  Serious: Yes (Other)
  Sender: FDA-Public Use
  Company Number: US-BAYER-2019-147862

PATIENT
  Age: 14 Year
  Sex: Male

DRUGS (4)
  1. KOGENATE FS [Suspect]
     Active Substance: ANTIHEMOPHILIC FACTOR, HUMAN RECOMBINANT
     Indication: GINGIVAL BLEEDING
     Dosage: 4 DF FOR DENTAL PROCEDURE
     Route: 042
     Dates: start: 201907, end: 201907
  2. KOGENATE FS [Suspect]
     Active Substance: ANTIHEMOPHILIC FACTOR, HUMAN RECOMBINANT
     Indication: FACTOR VIII DEFICIENCY
     Dosage: 3000 IU, QOD
     Route: 042
     Dates: start: 201801
  3. AMICAR [Concomitant]
     Active Substance: AMINOCAPROIC ACID
     Indication: TOOTH EXTRACTION
     Dosage: UNK
     Dates: start: 201907
  4. KOGENATE FS [Suspect]
     Active Substance: ANTIHEMOPHILIC FACTOR, HUMAN RECOMBINANT
     Indication: EPISTAXIS
     Dosage: 2 DF FOR NOSEBLEEDS
     Route: 042

REACTIONS (3)
  - Tooth extraction [Unknown]
  - Gingival bleeding [Unknown]
  - Epistaxis [Unknown]

NARRATIVE: CASE EVENT DATE: 201907
